FAERS Safety Report 4876437-3 (Version None)
Quarter: 2005Q4

REPORT INFORMATION
  Report Type: 
  Country: None (occurrence: None)
  Receive Date: 20051206
  Receipt Date: 20051005
  Transmission Date: 20060501
  Serious: No
  Sender: FDA-Public Use
  Company Number: USA0510110311

PATIENT
  Age: 50 Year
  Sex: Female

DRUGS (1)
  1. CYMBALTA [Suspect]
     Indication: MAJOR DEPRESSION
     Dosage: 30 MG
     Dates: start: 20041003, end: 20041017

REACTIONS (5)
  - AGITATION [None]
  - DISSOCIATION [None]
  - DISTURBANCE IN ATTENTION [None]
  - FEELING JITTERY [None]
  - MENTAL IMPAIRMENT [None]
